FAERS Safety Report 15473398 (Version 1)
Quarter: 2018Q4

REPORT INFORMATION
  Report Type: Spontaneous
  Country: IT (occurrence: IT)
  Receive Date: 20181008
  Receipt Date: 20181008
  Transmission Date: 20190205
  Serious: Yes (Hospitalization)
  Sender: FDA-Public Use
  Company Number: IT-PFIZER INC-2018400490

PATIENT
  Age: 92 Year
  Sex: Male

DRUGS (6)
  1. TRITTICO [Interacting]
     Active Substance: TRAZODONE HYDROCHLORIDE
     Indication: AGITATION
     Dosage: 300 MG, 1X/DAY
     Route: 048
  2. MINIPRESS [Concomitant]
     Active Substance: PRAZOSIN HYDROCHLORIDE
     Dosage: UNK
  3. ASPIRINETTA [Concomitant]
     Active Substance: ASPIRIN
     Dosage: UNK
  4. XANAX [Suspect]
     Active Substance: ALPRAZOLAM
     Indication: AGITATION
     Dosage: 20 GTT, 1X/DAY
     Route: 048
  5. BISOPROLOL FUMARATE. [Concomitant]
     Active Substance: BISOPROLOL FUMARATE
     Dosage: UNK
  6. TALOFEN [Interacting]
     Active Substance: PROMAZINE HYDROCHLORIDE
     Indication: AGITATION
     Dosage: 20 GTT, 1X/DAY
     Route: 048

REACTIONS (4)
  - Drug interaction [Recovering/Resolving]
  - Sopor [Recovering/Resolving]
  - Pneumonitis [Recovering/Resolving]
  - Dysphagia [Recovering/Resolving]

NARRATIVE: CASE EVENT DATE: 20180904
